FAERS Safety Report 5320452-2 (Version None)
Quarter: 2007Q2

REPORT INFORMATION
  Report Type: 
  Country: None (occurrence: None)
  Receive Date: 20070214
  Receipt Date: 20060201
  Transmission Date: 20071010
  Serious: Yes (Hospitalization, Other)
  Sender: FDA-Public Use
  Company Number: 2005-US-00053

PATIENT
  Age: 67 Year
  Sex: Female
  Weight: 95.2554 kg

DRUGS (15)
  1. FLUOXETINE HCL [Suspect]
     Indication: DEPRESSION
     Dosage: 20 MG (QD), ORAL
     Route: 048
     Dates: start: 20050826, end: 20050826
  2. FLUOXETINE HCL [Suspect]
     Indication: DEPRESSION
     Dosage: 20 MG (QD), ORAL
     Route: 048
     Dates: start: 20050812, end: 20050828
  3. CLOPIDOGREL BISULFATE [Concomitant]
  4. GLYCERYL TRINITRATE [Concomitant]
  5. OXYCODONE HCL [Concomitant]
  6. ESOMEPRAZOLE MAGNESIUM [Concomitant]
  7. EZETIMIBE [Concomitant]
  8. LEVOTHYROXINE SODIUM [Concomitant]
  9. FUROSEMIDE [Concomitant]
  10. POTASSIUM ACETATE [Concomitant]
  11. OXYBUTYNIN CHLORIDE [Concomitant]
  12. ACETYLSALICYLIC ACID SRT [Concomitant]
  13. PREGABALIN [Concomitant]
  14. FEXOFENADINE [Concomitant]
  15. LIDOCAINE [Concomitant]

REACTIONS (2)
  - CHEST PAIN [None]
  - HEART RATE INCREASED [None]
